FAERS Safety Report 8036032-4 (Version None)
Quarter: 2012Q1

REPORT INFORMATION
  Report Type: 
  Country: None (occurrence: None)
  Receive Date: 20120111
  Receipt Date: 20120103
  Transmission Date: 20120608
  Serious: No
  Sender: FDA-Public Use
  Company Number: US-B.I. PHARMACEUTICALS,INC./RIDGEFIELD-2012-BP-00411PF

PATIENT
  Age: 82 Year
  Sex: Female

DRUGS (1)
  1. SPIRIVA [Suspect]
     Dates: end: 20100518

REACTIONS (6)
  - NOCTURIA [None]
  - BLADDER OPERATION [None]
  - MICTURITION URGENCY [None]
  - BLADDER DYSPLASIA [None]
  - CYSTITIS [None]
  - DYSURIA [None]
